FAERS Safety Report 16569323 (Version 1)
Quarter: 2019Q3

REPORT INFORMATION
  Report Type: Spontaneous
  Country: UY (occurrence: UY)
  Receive Date: 20190715
  Receipt Date: 20190715
  Transmission Date: 20191004
  Serious: Yes (Other)
  Sender: FDA-Public Use
  Company Number: UY-TEVA-2019-UY-1077743

PATIENT
  Age: 26 Year
  Sex: Female

DRUGS (3)
  1. PREDNISOLONE. [Suspect]
     Active Substance: PREDNISOLONE
     Route: 065
  2. PREDNISONE. [Suspect]
     Active Substance: PREDNISONE
     Indication: GRANULOMA
     Dosage: RECEIVED 2 YEARS AGO FOR 2 WEEKS
     Route: 065
  3. PREDNISONE. [Suspect]
     Active Substance: PREDNISONE
     Indication: GRANULOMA
     Dosage: 20 MILLIGRAM DAILY;
     Route: 065

REACTIONS (2)
  - Drug abuse [Recovered/Resolved]
  - Cushing^s syndrome [Recovered/Resolved]
